FAERS Safety Report 4266017-5 (Version None)
Quarter: 2004Q1

REPORT INFORMATION
  Report Type: 
  Country: None (occurrence: None)
  Receive Date: 20040106
  Receipt Date: 20031219
  Transmission Date: 20041129
  Serious: Yes (Hospitalization)
  Sender: FDA-Public Use
  Company Number: DSA_23644_2003

PATIENT
  Age: 43 Year
  Sex: Female

DRUGS (3)
  1. LORAZEPAM [Suspect]
     Dosage: 12 MG ONCE PO
     Route: 048
     Dates: start: 20031122, end: 20031122
  2. ALCOHOL [Suspect]
     Dosage: 3 BOTTLE ONCE PO
     Route: 048
     Dates: start: 20031122, end: 20031122
  3. CITALOPRAM [Concomitant]

REACTIONS (5)
  - DEPRESSED LEVEL OF CONSCIOUSNESS [None]
  - DEPRESSION [None]
  - FATIGUE [None]
  - INTENTIONAL OVERDOSE [None]
  - SINUS TACHYCARDIA [None]
